FAERS Safety Report 23788366 (Version 1)
Quarter: 2024Q2

REPORT INFORMATION
  Report Type: Spontaneous
  Country: US (occurrence: None)
  Receive Date: 20240426
  Receipt Date: 20240426
  Transmission Date: 20240716
  Serious: No
  Sender: FDA-Public Use
  Company Number: US-SUPERNUS Pharmaceuticals, Inc.-SUP202402-000401

PATIENT
  Age: 13 Year
  Sex: Female
  Weight: 63.5 kg

DRUGS (7)
  1. QELBREE [Suspect]
     Active Substance: VILOXAZINE HYDROCHLORIDE
     Indication: Attention deficit hyperactivity disorder
     Dosage: TOTAL 400MG FOR ADHD FROM PROBABLY AUG/2022
     Dates: start: 202208, end: 2023
  2. QELBREE [Suspect]
     Active Substance: VILOXAZINE HYDROCHLORIDE
     Dosage: NOT PROVIDED
     Dates: start: 2023, end: 2023
  3. QELBREE [Suspect]
     Active Substance: VILOXAZINE HYDROCHLORIDE
     Dosage: NOT PROVIDED
     Dates: start: 2023, end: 202312
  4. IBUPROFEN [Concomitant]
     Active Substance: IBUPROFEN
     Indication: Headache
     Dosage: NOT PROVIDED
  5. BENADRYL [Concomitant]
     Active Substance: DIPHENHYDRAMINE HYDROCHLORIDE
     Indication: Hypersensitivity
     Dosage: NOT PROVIDED
  6. ZYRTEC [Concomitant]
     Active Substance: CETIRIZINE HYDROCHLORIDE
     Indication: Hypersensitivity
     Dosage: NOT PROVIDED
  7. FLONASE [Concomitant]
     Active Substance: FLUTICASONE PROPIONATE
     Indication: Hypersensitivity
     Dosage: NOT PROVIDED

REACTIONS (6)
  - Lymphadenopathy [Recovered/Resolved]
  - Lymph node pain [Recovered/Resolved]
  - Lymphadenopathy [Recovered/Resolved]
  - Lymph node pain [Recovered/Resolved]
  - Lymphadenopathy [Recovered/Resolved]
  - Lymph node pain [Recovered/Resolved]

NARRATIVE: CASE EVENT DATE: 20221101
